FAERS Safety Report 24670543 (Version 2)
Quarter: 2025Q1

REPORT INFORMATION
  Report Type: Spontaneous
  Country: US (occurrence: US)
  Receive Date: 20241127
  Receipt Date: 20250109
  Transmission Date: 20250409
  Serious: No
  Sender: PFIZER
  Company Number: US-PFIZER INC-PV202400152550

PATIENT
  Age: 77 Year
  Sex: Female

DRUGS (7)
  1. IBRANCE [Suspect]
     Active Substance: PALBOCICLIB
     Indication: Hormone receptor positive breast cancer
     Route: 048
  2. IBRANCE [Suspect]
     Active Substance: PALBOCICLIB
     Indication: Breast cancer female
  3. IBRANCE [Suspect]
     Active Substance: PALBOCICLIB
     Indication: Metastases to bone
  4. IBRANCE [Suspect]
     Active Substance: PALBOCICLIB
     Indication: Breast cancer metastatic
  5. DIFLUCAN [Concomitant]
     Active Substance: FLUCONAZOLE
     Dosage: 150 MG, WEEKLY, REFILLS: 2 (TAKE 1 TABLET NOW AND REPEAT WEEKLY FOR FOUR WEEKS)
     Route: 048
  6. FEMARA [Concomitant]
     Active Substance: LETROZOLE
  7. NEURONTIN [Concomitant]
     Active Substance: GABAPENTIN
     Dosage: 800 MG, 1X/DAY (TAKE 1 TABLET)
     Route: 048

REACTIONS (2)
  - Neoplasm progression [Unknown]
  - Radicular pain [Unknown]

NARRATIVE: CASE EVENT DATE: 20241001
